FAERS Safety Report 8234302-8 (Version None)
Quarter: 2012Q1

REPORT INFORMATION
  Report Type: 
  Country: None (occurrence: None)
  Receive Date: 20120321
  Receipt Date: 20120314
  Transmission Date: 20120608
  Serious: Yes (Other)
  Sender: FDA-Public Use
  Company Number: ACO_26323_2011

PATIENT
  Age: 65 Year
  Sex: Male
  Weight: 112 kg

DRUGS (8)
  1. METHOTREXATE [Concomitant]
  2. AMPYRA [Suspect]
     Indication: GAIT DISTURBANCE
     Dosage: 10 MG, BID
  3. SOLU-MEDROL [Concomitant]
  4. AVONEX [Suspect]
     Indication: MULTIPLE SCLEROSIS
     Dosage: 30 ?G, WEEKLY, INTRAMUSCULAR
     Route: 030
     Dates: start: 20110601
  5. PRAMIPEXOLE /01356402/ (PRAMIPEXOLE DIHYDROCHLORIDE) [Concomitant]
  6. AMPYRA [Suspect]
  7. CRESTOR [Concomitant]
  8. PROVIGIL [Concomitant]

REACTIONS (5)
  - ASTHENIA [None]
  - ABASIA [None]
  - FALL [None]
  - OEDEMA PERIPHERAL [None]
  - MUSCULAR WEAKNESS [None]
